FAERS Safety Report 4607434-0 (Version None)
Quarter: 2005Q1

REPORT INFORMATION
  Report Type: 
  Country: None (occurrence: None)
  Receive Date: 20050314
  Receipt Date: 20050228
  Transmission Date: 20050727
  Serious: Yes (Disabling)
  Sender: FDA-Public Use
  Company Number: NL-ROCHE-396879

PATIENT
  Age: 39 Year
  Sex: Male
  Weight: 66 kg

DRUGS (4)
  1. PEG-INTERFERON ALFA 2A (RO 25-8310) [Suspect]
     Route: 058
     Dates: start: 20040809, end: 20050225
  2. RIBAVIRIN [Suspect]
     Route: 048
     Dates: start: 20040809, end: 20050225
  3. CITALOPRAM HYDROBROMIDE [Concomitant]
     Dates: end: 20050223
  4. OXAZEPAM [Concomitant]
     Dates: start: 20050103

REACTIONS (1)
  - FACIAL PALSY [None]
